FAERS Safety Report 24413431 (Version 1)
Quarter: 2024Q4

REPORT INFORMATION
  Report Type: Spontaneous
  Country: FR (occurrence: FR)
  Receive Date: 20241008
  Receipt Date: 20241008
  Transmission Date: 20250115
  Serious: Yes (Hospitalization, Other)
  Sender: GILEAD
  Company Number: FR-GILEAD-2024-0689637

PATIENT
  Age: 75 Year
  Sex: Male

DRUGS (1)
  1. YESCARTA [Suspect]
     Active Substance: AXICABTAGENE CILOLEUCEL
     Indication: High-grade B-cell lymphoma
     Dosage: UNK (DAY 0)
     Route: 065
     Dates: start: 20230706, end: 20230706

REACTIONS (9)
  - Septic shock [Unknown]
  - Clostridium difficile colitis [Unknown]
  - Haematoma [Unknown]
  - Arterial haemorrhage [Unknown]
  - Clinomania [Unknown]
  - Haematoma [Unknown]
  - Weight decreased [Unknown]
  - Acute kidney injury [Unknown]
  - Cytokine release syndrome [Recovered/Resolved]

NARRATIVE: CASE EVENT DATE: 20230707
